FAERS Safety Report 15562444 (Version 1)
Quarter: 2018Q4

REPORT INFORMATION
  Report Type: Spontaneous
  Country: JP (occurrence: JP)
  Receive Date: 20181029
  Receipt Date: 20181029
  Transmission Date: 20190205
  Serious: Yes (Other)
  Sender: FDA-Public Use
  Company Number: JP-JNJFOC-20181039355

PATIENT
  Sex: Male

DRUGS (1)
  1. ZYTIGA [Suspect]
     Active Substance: ABIRATERONE ACETATE
     Indication: HORMONE-REFRACTORY PROSTATE CANCER
     Route: 048

REACTIONS (9)
  - Hepatic function abnormal [Unknown]
  - Constipation [Unknown]
  - Hypokalaemia [Unknown]
  - Renal impairment [Unknown]
  - White blood cell count decreased [Unknown]
  - Hypertension [Unknown]
  - Fatigue [Unknown]
  - Pyrexia [Unknown]
  - Hyperglycaemia [Unknown]
